FAERS Safety Report 5460226-5 (Version None)
Quarter: 2007Q3

REPORT INFORMATION
  Report Type: 
  Country: None (occurrence: None)
  Receive Date: 20070919
  Receipt Date: 20070912
  Transmission Date: 20080115
  Serious: Yes (Other)
  Sender: FDA-Public Use
  Company Number: DE-ABBOTT-07P-062-0372693-00

PATIENT

DRUGS (1)
  1. ERGENYL GRANULE [Suspect]
     Indication: PETIT MAL EPILEPSY
     Route: 048

REACTIONS (2)
  - CONVULSION [None]
  - MEDICATION RESIDUE [None]
